FAERS Safety Report 17467485 (Version 1)
Quarter: 2020Q1

REPORT INFORMATION
  Report Type: Spontaneous
  Country: US (occurrence: US)
  Receive Date: 20200227
  Receipt Date: 20200227
  Transmission Date: 20200409
  Serious: No
  Sender: FDA-Public Use
  Company Number: US-PFIZER INC-2020086515

PATIENT
  Age: 70 Year
  Sex: Female

DRUGS (2)
  1. IBRANCE [Suspect]
     Active Substance: PALBOCICLIB
     Indication: BREAST CANCER METASTATIC
     Dosage: 125 MG, CYCLIC (QD (ONCE A DAY) X 21 OUT OF 28 DAYS)
  2. ANASTROZOLE. [Concomitant]
     Active Substance: ANASTROZOLE
     Dosage: 1 MG, 1X/DAY

REACTIONS (6)
  - Decreased appetite [Unknown]
  - Aphasia [Unknown]
  - Fatigue [Unknown]
  - Weight decreased [Unknown]
  - Muscle tone disorder [Unknown]
  - Cognitive disorder [Unknown]
